FAERS Safety Report 25259289 (Version 1)
Quarter: 2025Q2

REPORT INFORMATION
  Report Type: Spontaneous
  Country: US (occurrence: None)
  Receive Date: 20250430
  Receipt Date: 20250430
  Transmission Date: 20250717
  Serious: Yes (Other)
  Sender: FDA-CTU
  Company Number: None

PATIENT
  Age: 30 Year
  Sex: Male

DRUGS (1)
  1. YESINTEK [Suspect]
     Active Substance: USTEKINUMAB-KFCE
     Indication: Colitis ulcerative
     Dosage: FREQUENCY : MONTHLY;?

REACTIONS (1)
  - Pyrexia [None]
